FAERS Safety Report 15833570 (Version 2)
Quarter: 2019Q1

REPORT INFORMATION
  Report Type: Spontaneous
  Country: IE (occurrence: IE)
  Receive Date: 20190116
  Receipt Date: 20190325
  Transmission Date: 20190417
  Serious: Yes (Hospitalization, Disabling)
  Sender: FDA-Public Use
  Company Number: IE-MYLANLABS-2019M1003422

PATIENT
  Sex: Female

DRUGS (3)
  1. BY-MYCIN [Suspect]
     Active Substance: DOXYCYCLINE HYCLATE
     Indication: HELICOBACTER INFECTION
     Dosage: 100 MILLIGRAM, QD
     Route: 048
  2. NEXIUM [Concomitant]
     Active Substance: ESOMEPRAZOLE MAGNESIUM
     Indication: HELICOBACTER INFECTION
     Dosage: UNK
  3. LEVOFLOXACIN MYLAN [Suspect]
     Active Substance: LEVOFLOXACIN
     Indication: HELICOBACTER INFECTION
     Dosage: 500MG QD (Q2W)
     Route: 048

REACTIONS (2)
  - Impaired work ability [Not Recovered/Not Resolved]
  - Tendonitis [Not Recovered/Not Resolved]

NARRATIVE: CASE EVENT DATE: 2018
